FAERS Safety Report 18253869 (Version 1)
Quarter: 2020Q3

REPORT INFORMATION
  Report Type: Report from Study
  Country: CA (occurrence: CA)
  Receive Date: 20200910
  Receipt Date: 20200910
  Transmission Date: 20201103
  Serious: Yes (Hospitalization)
  Sender: FDA-Public Use
  Company Number: CA-JNJFOC-20190803694

PATIENT
  Age: 15 Year
  Sex: Female
  Weight: 43.7 kg

DRUGS (9)
  1. REMICADE [Suspect]
     Active Substance: INFLIXIMAB
     Indication: CROHN^S DISEASE
     Dosage: STRENGTH = 100 MG
     Route: 042
     Dates: start: 20181106
  2. SYNTHROID [Concomitant]
     Active Substance: LEVOTHYROXINE SODIUM
     Route: 048
  3. PENTASA [Concomitant]
     Active Substance: MESALAMINE
     Dosage: STRENGTH = 1 G
     Route: 048
  4. VIT D [Concomitant]
     Active Substance: VITAMIN D NOS
  5. PENTASA [Concomitant]
     Active Substance: MESALAMINE
     Dosage: STRENGTH = 1 G
     Route: 048
  6. DERMATIX ULTRA [Concomitant]
     Route: 061
  7. CALCIUM W/COLECALCIFEROL [Concomitant]
     Active Substance: CALCIUM\CHOLECALCIFEROL
     Route: 048
  8. REMICADE [Suspect]
     Active Substance: INFLIXIMAB
     Dosage: STRENGTH = 100 MG
     Route: 042
  9. EURO D [Concomitant]
     Route: 048

REACTIONS (1)
  - Cellulitis [Recovering/Resolving]

NARRATIVE: CASE EVENT DATE: 20190703
